FAERS Safety Report 7119030-4 (Version None)
Quarter: 2010Q4

REPORT INFORMATION
  Report Type: 
  Country: None (occurrence: None)
  Receive Date: 20101123
  Receipt Date: 20101116
  Transmission Date: 20110411
  Serious: Yes (Hospitalization)
  Sender: FDA-Public Use
  Company Number: A0894319A

PATIENT
  Age: 61 Year
  Sex: Male

DRUGS (3)
  1. LAPATINIB [Suspect]
     Dosage: 1250MG PER DAY
     Route: 048
     Dates: start: 20101110
  2. CAPECITABINE [Suspect]
     Dosage: 2000MG TWICE PER DAY
     Route: 048
     Dates: start: 20101110
  3. COUMADIN [Concomitant]
     Indication: DEEP VEIN THROMBOSIS
     Route: 048

REACTIONS (1)
  - DEEP VEIN THROMBOSIS [None]
